FAERS Safety Report 18783463 (Version 2)
Quarter: 2021Q1

REPORT INFORMATION
  Report Type: Report from Study
  Country: US (occurrence: US)
  Receive Date: 20210125
  Receipt Date: 20210129
  Transmission Date: 20210419
  Serious: Yes (Other)
  Sender: FDA-Public Use
  Company Number: US-ASTRAZENECA-2021A005520

PATIENT
  Sex: Female

DRUGS (10)
  1. CALQUENCE [Suspect]
     Active Substance: ACALABRUTINIB
     Indication: CHRONIC LYMPHOCYTIC LEUKAEMIA
     Route: 048
     Dates: start: 20200930, end: 20201026
  2. VITAMIN B12 [Concomitant]
     Active Substance: CYANOCOBALAMIN
  3. MILK THISTLE [Concomitant]
     Active Substance: DIETARY SUPPLEMENT\HERBALS\MILK THISTLE
  4. CALQUENCE [Suspect]
     Active Substance: ACALABRUTINIB
     Indication: CHRONIC LYMPHOCYTIC LEUKAEMIA
     Route: 048
     Dates: start: 20200724
  5. CALQUENCE [Suspect]
     Active Substance: ACALABRUTINIB
     Indication: CHRONIC LYMPHOCYTIC LEUKAEMIA
     Route: 048
     Dates: start: 20201220
  6. ASCORBIC [Concomitant]
  7. IRON [Concomitant]
     Active Substance: IRON
  8. COD LIVER [Concomitant]
     Active Substance: COD LIVER OIL
  9. CALQUENCE [Suspect]
     Active Substance: ACALABRUTINIB
     Indication: CHRONIC LYMPHOCYTIC LEUKAEMIA
     Dosage: HALF ORIGINAL DOSE
     Route: 048
     Dates: start: 20200922
  10. NIACINAMIDE [Concomitant]
     Active Substance: NIACINAMIDE

REACTIONS (9)
  - Haemorrhage [Unknown]
  - Urinary retention [Unknown]
  - Platelet count decreased [Not Recovered/Not Resolved]
  - Diarrhoea [Not Recovered/Not Resolved]
  - Anaphylactic reaction [Not Recovered/Not Resolved]
  - Haematochezia [Not Recovered/Not Resolved]
  - Retinal tear [Not Recovered/Not Resolved]
  - Splenomegaly [Recovering/Resolving]
  - Abdominal discomfort [Recovering/Resolving]
